FAERS Safety Report 6202078-1 (Version None)
Quarter: 2009Q2

REPORT INFORMATION
  Report Type: 
  Country: None (occurrence: None)
  Receive Date: 20090526
  Receipt Date: 20090421
  Transmission Date: 20091009
  Serious: No
  Sender: FDA-Public Use
  Company Number: US-BAYER-200911285BCC

PATIENT
  Age: 13 Year
  Sex: Female
  Weight: 59 kg

DRUGS (3)
  1. ALEVE [Suspect]
     Indication: PAIN IN EXTREMITY
     Dosage: TOTAL DAILY DOSE: 440 MG  UNIT DOSE: 220 MG
     Route: 048
     Dates: start: 20090420, end: 20090420
  2. ALEVE [Suspect]
     Dosage: TOTAL DAILY DOSE: 660 MG  UNIT DOSE: 220 MG
     Route: 048
     Dates: start: 20090421
  3. ALEVE [Suspect]
     Dosage: UNK
     Route: 048

REACTIONS (4)
  - ABDOMINAL DISCOMFORT [None]
  - MALAISE [None]
  - PYREXIA [None]
  - SPEECH DISORDER [None]
